FAERS Safety Report 18002472 (Version 2)
Quarter: 2020Q3

REPORT INFORMATION
  Report Type: Report from Study
  Country: EG (occurrence: EG)
  Receive Date: 20200710
  Receipt Date: 20200722
  Transmission Date: 20201103
  Serious: Yes (Other)
  Sender: FDA-Public Use
  Company Number: EG-REGENERON PHARMACEUTICALS, INC.-2020-48921

PATIENT

DRUGS (3)
  1. EYLEA [Suspect]
     Active Substance: AFLIBERCEPT
     Indication: AGE-RELATED MACULAR DEGENERATION
     Dosage: UNKNOWN DOSE AND FREQUENCY, TOTAL NUMBER OF INJECTIONS: 4 IN THE LEFT EYE
     Route: 031
     Dates: start: 20190831, end: 2020
  2. HYZAAR [Concomitant]
     Active Substance: HYDROCHLOROTHIAZIDE\LOSARTAN POTASSIUM
     Indication: HYPERTENSION
     Dosage: 50 MG, OM
     Dates: start: 2005
  3. MYODURA [Concomitant]
     Indication: HYPERTENSION
     Dosage: 1 DF, PRN
     Dates: start: 2015

REACTIONS (2)
  - Retinal fibrosis [Not Recovered/Not Resolved]
  - Vision blurred [Not Recovered/Not Resolved]
